FAERS Safety Report 8402459-1 (Version None)
Quarter: 2012Q2

REPORT INFORMATION
  Report Type: 
  Country: None (occurrence: None)
  Receive Date: 20120323
  Receipt Date: 20110113
  Transmission Date: 20120825
  Serious: Yes (Other)
  Sender: FDA-Public Use
  Company Number: 163-21880-11011204

PATIENT
  Age: 63 Year
  Sex: Male
  Weight: 65.318 kg

DRUGS (3)
  1. NEURONTIN [Concomitant]
  2. LORTAB [Concomitant]
  3. REVLIMID [Suspect]
     Indication: LYMPHOMA
     Dosage: 25 MG, DAILY FOR 21 DAYS, 7 DAYS OFF, PO
     Route: 048
     Dates: start: 20101227, end: 20110102

REACTIONS (4)
  - OEDEMA PERIPHERAL [None]
  - PRURITUS [None]
  - RASH GENERALISED [None]
  - ABDOMINAL DISTENSION [None]
